FAERS Safety Report 9817864 (Version 1)
Quarter: 2014Q1

REPORT INFORMATION
  Report Type: Spontaneous
  Country: US (occurrence: None)
  Receive Date: 20140110
  Receipt Date: 20140110
  Transmission Date: 20141002
  Serious: Yes (Other)
  Sender: FDA-Public Use
  Company Number: None

PATIENT
  Age: 35 Year
  Sex: Female

DRUGS (2)
  1. ALFUZOSIN [Suspect]
     Indication: MULTIPLE ALLERGIES
     Dosage: 30 QD ORAL
     Route: 048
  2. AVKARE SINGULAIR [Concomitant]

REACTIONS (2)
  - Product label confusion [None]
  - Circumstance or information capable of leading to medication error [None]
